FAERS Safety Report 13519554 (Version 1)
Quarter: 2017Q2

REPORT INFORMATION
  Report Type: Spontaneous
  Country: SI (occurrence: SI)
  Receive Date: 20170505
  Receipt Date: 20170505
  Transmission Date: 20170830
  Serious: Yes (Life-Threatening, Hospitalization, Other)
  Sender: FDA-Public Use
  Company Number: SI-B.I. PHARMACEUTICALS,INC./RIDGEFIELD-2017-BI-025557

PATIENT
  Age: 87 Year
  Sex: Male

DRUGS (1)
  1. DABIGATRAN ETEXILATE [Suspect]
     Active Substance: DABIGATRAN ETEXILATE
     Indication: ATRIAL FIBRILLATION
     Route: 065

REACTIONS (8)
  - Femur fracture [Unknown]
  - Acute kidney injury [Recovered/Resolved]
  - Shock haemorrhagic [Recovered/Resolved]
  - Anaemia [Unknown]
  - Cardiac failure [Unknown]
  - Hypervolaemia [Unknown]
  - Haemorrhage [Recovered/Resolved]
  - Renal impairment [Unknown]
